FAERS Safety Report 6982045-0 (Version None)
Quarter: 2010Q3

REPORT INFORMATION
  Report Type: 
  Country: None (occurrence: None)
  Receive Date: 20100914
  Receipt Date: 20091117
  Transmission Date: 20110219
  Serious: Yes (Other)
  Sender: FDA-Public Use
  Company Number: US-PFIZER INC-2009281713

PATIENT
  Sex: Male
  Weight: 106.14 kg

DRUGS (2)
  1. LYRICA [Suspect]
     Indication: NEUROPATHY PERIPHERAL
     Dosage: FREQUENCY: 2X/DAY,
     Dates: start: 20060101, end: 20090901
  2. LOVENOX [Concomitant]
     Indication: BLOOD VISCOSITY INCREASED

REACTIONS (13)
  - DEPRESSION [None]
  - DIZZINESS [None]
  - GAIT DISTURBANCE [None]
  - HEADACHE [None]
  - HYPOAESTHESIA [None]
  - INCOHERENT [None]
  - INSOMNIA [None]
  - MYALGIA [None]
  - PAIN [None]
  - SENSORY LOSS [None]
  - SUICIDAL BEHAVIOUR [None]
  - VISUAL ACUITY REDUCED [None]
  - WEIGHT DECREASED [None]
